FAERS Safety Report 5928221-7 (Version None)
Quarter: 2008Q4

REPORT INFORMATION
  Report Type: 
  Country: None (occurrence: None)
  Receive Date: 20081022
  Receipt Date: 20081022
  Transmission Date: 20090506
  Serious: Yes (Hospitalization)
  Sender: FDA-Public Use
  Company Number: None

PATIENT
  Age: 23 Year
  Sex: Female
  Weight: 58.9676 kg

DRUGS (1)
  1. PROAIR HFA [Suspect]
     Indication: ASTHMA
     Dosage: 200 METERED 2 PUFFS EVERY 4 HR INHAL
     Route: 055
     Dates: start: 20080320, end: 20080401

REACTIONS (2)
  - DRUG INEFFECTIVE [None]
  - OXYGEN SATURATION DECREASED [None]
